FAERS Safety Report 5957778-5 (Version None)
Quarter: 2008Q4

REPORT INFORMATION
  Report Type: 
  Country: None (occurrence: None)
  Receive Date: 20081117
  Receipt Date: 20081031
  Transmission Date: 20090506
  Serious: Yes (Hospitalization)
  Sender: FDA-Public Use
  Company Number: JPI-P-004243

PATIENT
  Age: 56 Year
  Sex: Female
  Weight: 81.6475 kg

DRUGS (16)
  1. XYREM [Suspect]
     Indication: INSOMNIA
     Dosage: 4.5 GM (2.25 GM, 2 IN 1 D), ORAL ; GM (4.5 GM, 2 IN 1 D), ORAL
     Route: 048
     Dates: start: 20060611, end: 20060801
  2. XYREM [Suspect]
     Indication: NARCOLEPSY
     Dosage: 4.5 GM (2.25 GM, 2 IN 1 D), ORAL ; GM (4.5 GM, 2 IN 1 D), ORAL
     Route: 048
     Dates: start: 20060611, end: 20060801
  3. XYREM [Suspect]
     Indication: SOMNOLENCE
     Dosage: 4.5 GM (2.25 GM, 2 IN 1 D), ORAL ; GM (4.5 GM, 2 IN 1 D), ORAL
     Route: 048
     Dates: start: 20060611, end: 20060801
  4. XYREM [Suspect]
     Indication: INSOMNIA
     Dosage: 4.5 GM (2.25 GM, 2 IN 1 D), ORAL ; GM (4.5 GM, 2 IN 1 D), ORAL
     Route: 048
     Dates: start: 20060801
  5. XYREM [Suspect]
     Indication: NARCOLEPSY
     Dosage: 4.5 GM (2.25 GM, 2 IN 1 D), ORAL ; GM (4.5 GM, 2 IN 1 D), ORAL
     Route: 048
     Dates: start: 20060801
  6. XYREM [Suspect]
     Indication: SOMNOLENCE
     Dosage: 4.5 GM (2.25 GM, 2 IN 1 D), ORAL ; GM (4.5 GM, 2 IN 1 D), ORAL
     Route: 048
     Dates: start: 20060801
  7. LORAZEPAM [Suspect]
     Indication: ANXIETY
     Dates: end: 20080901
  8. UNSPECIFIED BLOOD PRESSURE MEDICATION (ANTIHYPERTENSIVES) [Concomitant]
  9. MODAFINIL [Concomitant]
  10. QUETIAPINE FUMARATE [Concomitant]
  11. TRAZODONE HCL [Concomitant]
  12. CLONIDINE [Concomitant]
  13. ARIPIPRAZOLE [Concomitant]
  14. DULOXETINE HYDROCHLORIDE (DULOXETINE HYDROCHLORIDE) [Concomitant]
  15. AMPHETAMINE MIXED SALTS (AMFETAMINE SULFATE) [Concomitant]
  16. CLONAZEPAM [Concomitant]

REACTIONS (6)
  - ALTERED STATE OF CONSCIOUSNESS [None]
  - DYSPNOEA [None]
  - FALL [None]
  - FIBULA FRACTURE [None]
  - HYPOTENSION [None]
  - LOWER LIMB FRACTURE [None]
